FAERS Safety Report 23040233 (Version 1)
Quarter: 2023Q4

REPORT INFORMATION
  Report Type: Spontaneous
  Country: US (occurrence: None)
  Receive Date: 20231006
  Receipt Date: 20231006
  Transmission Date: 20240110
  Serious: Yes (Hospitalization)
  Sender: FDA-Public Use
  Company Number: None

PATIENT
  Age: 59 Year
  Sex: Male
  Weight: 117.93 kg

DRUGS (12)
  1. BUPROPION HYDROCHLORIDE EXTENDED RELEASE [Suspect]
     Active Substance: BUPROPION HYDROCHLORIDE
     Indication: Seasonal affective disorder
     Dosage: OTHER FREQUENCY : ONE EVERY MORNING;?
     Route: 048
     Dates: start: 202204, end: 20220704
  2. ALLOPURINOL [Concomitant]
     Active Substance: ALLOPURINOL
  3. PRISTIQ EXTENDED-RELEASE [Concomitant]
     Active Substance: DESVENLAFAXINE SUCCINATE
  4. METOPROLOL [Concomitant]
     Active Substance: METOPROLOL
  5. XARELTO [Concomitant]
     Active Substance: RIVAROXABAN
  6. PRAVASTATIN [Concomitant]
     Active Substance: PRAVASTATIN
  7. BENICAR [Concomitant]
     Active Substance: OLMESARTAN MEDOXOMIL
  8. DEVICE [Concomitant]
     Active Substance: DEVICE
  9. ACID REDUCER [Concomitant]
  10. FISH OIL [Concomitant]
     Active Substance: FISH OIL
  11. MAGNESIUM [Concomitant]
     Active Substance: MAGNESIUM
  12. COENZYME Q10 [Concomitant]
     Active Substance: DIETARY SUPPLEMENT\UBIDECARENONE

REACTIONS (12)
  - Dizziness postural [None]
  - Dizziness [None]
  - Visual impairment [None]
  - Headache [None]
  - Sinusitis [None]
  - Facial paralysis [None]
  - Confusional state [None]
  - Paraesthesia [None]
  - Cerebrovascular accident [None]
  - Hemiplegic migraine [None]
  - Aura [None]
  - Speech disorder [None]

NARRATIVE: CASE EVENT DATE: 20220610
